FAERS Safety Report 17452068 (Version 2)
Quarter: 2020Q4

REPORT INFORMATION
  Report Type: Report from Study
  Country: US (occurrence: US)
  Receive Date: 20200224
  Receipt Date: 20201102
  Transmission Date: 20210113
  Serious: Yes (Hospitalization)
  Sender: FDA-Public Use
  Company Number: US-JNJFOC-20200219529

PATIENT

DRUGS (10)
  1. INFLUENZA VACCINE [Concomitant]
     Active Substance: INFLUENZA VIRUS VACCINE
  2. METHOTREXATE. [Concomitant]
     Active Substance: METHOTREXATE
  3. REMICADE [Suspect]
     Active Substance: INFLIXIMAB
     Indication: RHEUMATOID ARTHRITIS
     Route: 042
  4. SIMPONI [Suspect]
     Active Substance: GOLIMUMAB
     Indication: RHEUMATOID ARTHRITIS
     Route: 058
  5. HYDROXYCHLOROQUINE                 /00072603/ [Concomitant]
     Active Substance: HYDROXYCHLOROQUINE SULFATE
  6. AZATHIOPRINE. [Concomitant]
     Active Substance: AZATHIOPRINE
  7. LEFLUNOMIDE. [Concomitant]
     Active Substance: LEFLUNOMIDE
  8. SULFASALAZINE. [Concomitant]
     Active Substance: SULFASALAZINE
  9. CYCLOSPORINE. [Concomitant]
     Active Substance: CYCLOSPORINE
  10. INSULIN [Concomitant]
     Active Substance: INSULIN NOS

REACTIONS (10)
  - Pneumonia [Unknown]
  - Sepsis [Unknown]
  - Soft tissue infection [Unknown]
  - Urinary tract infection [Unknown]
  - Infection [Unknown]
  - Bacteraemia [Unknown]
  - Bacterial infection [Unknown]
  - Pyelonephritis [Unknown]
  - Herpes zoster [Unknown]
  - Upper respiratory tract infection [Unknown]
